FAERS Safety Report 14740993 (Version 1)
Quarter: 2018Q2

REPORT INFORMATION
  Report Type: Spontaneous
  Country: SN (occurrence: SN)
  Receive Date: 20180410
  Receipt Date: 20180410
  Transmission Date: 20180711
  Serious: Yes (Other)
  Sender: FDA-Public Use
  Company Number: SN-AKORN PHARMACEUTICALS-2018AKN00426

PATIENT
  Age: 35 Year
  Sex: Male
  Weight: 41 kg

DRUGS (8)
  1. PYRAZINAMIDE. [Suspect]
     Active Substance: PYRAZINAMIDE
     Dosage: HALF DOSE
  2. RIFAMPICIN [Concomitant]
     Active Substance: RIFAMPIN
     Indication: PULMONARY TUBERCULOSIS
     Dosage: 150 MG, RATE OF THREE TABLETS COMBINED DAILY
     Route: 065
  3. ISONIAZID. [Concomitant]
     Active Substance: ISONIAZID
     Indication: PULMONARY TUBERCULOSIS
     Dosage: 75 MG, RATE OF THREE TABLETS COMBINED DAILY
     Route: 065
  4. ISONIAZID. [Concomitant]
     Active Substance: ISONIAZID
     Dosage: HALF DOSE
  5. ETHAMBUTOL [Concomitant]
     Active Substance: ETHAMBUTOL HYDROCHLORIDE
     Indication: PULMONARY TUBERCULOSIS
     Dosage: 400 MG, RATE OF THREE TABLETS COMBINED DAILY
     Route: 065
  6. PYRAZINAMIDE. [Suspect]
     Active Substance: PYRAZINAMIDE
     Indication: PULMONARY TUBERCULOSIS
     Dosage: 275 MG, RATE OF THREE TABLETS COMBINED DAILY
     Route: 065
  7. ETHAMBUTOL [Concomitant]
     Active Substance: ETHAMBUTOL HYDROCHLORIDE
     Dosage: HALF DOSE
  8. RIFAMPICIN [Concomitant]
     Active Substance: RIFAMPIN
     Dosage: HALF DOSE

REACTIONS (1)
  - Drug reaction with eosinophilia and systemic symptoms [Recovered/Resolved]
